FAERS Safety Report 12287367 (Version 1)
Quarter: 2016Q2

REPORT INFORMATION
  Report Type: Spontaneous
  Country: US (occurrence: US)
  Receive Date: 20160420
  Receipt Date: 20160420
  Transmission Date: 20160815
  Serious: Yes (Other)
  Sender: FDA-Public Use
  Company Number: US-FRESENIUS KABI-FK201601956

PATIENT
  Age: 48 Year
  Sex: Female

DRUGS (7)
  1. INTERLEUKIN-2 [Suspect]
     Active Substance: ALDESLEUKIN
     Indication: METASTASES TO LIVER
     Route: 065
  2. IPILIMUMAB [Suspect]
     Active Substance: IPILIMUMAB
     Indication: METASTASES TO LIVER
     Route: 065
  3. NIVOLUMAB [Suspect]
     Active Substance: NIVOLUMAB
     Indication: METASTASES TO LIVER
     Route: 065
  4. VINBLASTINE (MANUFACTURER UNKNOWN) [Suspect]
     Active Substance: VINBLASTINE
     Indication: METASTASES TO LIVER
     Route: 065
  5. INTERFERON [Suspect]
     Active Substance: INTERFERON
     Indication: METASTASES TO LIVER
     Route: 065
  6. CISPLATIN (MANUFACTURER UNKNOWN) [Suspect]
     Active Substance: CISPLATIN
     Indication: METASTASES TO LIVER
     Route: 065
  7. DACARBAZINE (MANUFACTURER UNKNOWN) [Suspect]
     Active Substance: DACARBAZINE
     Indication: METASTASES TO LIVER
     Route: 065

REACTIONS (4)
  - Disease progression [Unknown]
  - Colitis [Recovered/Resolved]
  - Hepatotoxicity [Unknown]
  - Lymphocytic hypophysitis [Recovered/Resolved]
